FAERS Safety Report 9504252 (Version 1)
Quarter: 2013Q3

REPORT INFORMATION
  Report Type: Spontaneous
  Country: DE (occurrence: DE)
  Receive Date: 20130906
  Receipt Date: 20130906
  Transmission Date: 20140515
  Serious: Yes (Hospitalization)
  Sender: FDA-Public Use
  Company Number: DE-GLAXOSMITHKLINE-B0920019A

PATIENT
  Age: 73 Year
  Sex: Male
  Weight: 67 kg

DRUGS (9)
  1. CEFUROXIM AXETIL [Suspect]
     Indication: INFLUENZA LIKE ILLNESS
     Dosage: 250MG TWICE PER DAY
     Route: 048
     Dates: start: 20121128
  2. PRADAXA [Suspect]
     Indication: ATRIAL FIBRILLATION
     Dosage: 110MG TWICE PER DAY
     Route: 048
     Dates: start: 20121116, end: 20121201
  3. RASILEZ [Concomitant]
     Indication: HYPERTENSION
     Route: 048
  4. BISOPROLOL [Concomitant]
     Indication: HYPERTENSION
     Route: 048
  5. TORASEMID [Concomitant]
     Indication: HYPERTENSION
     Dosage: 10MG PER DAY
     Route: 048
  6. CARMEN [Concomitant]
     Indication: HYPERTENSION
     Dosage: 5MG PER DAY
     Route: 048
  7. ALLOPURINOL [Concomitant]
     Dosage: 50MG WEEKLY
     Route: 048
  8. MOXONIDINE [Concomitant]
     Dosage: .3MG PER DAY
     Route: 048
  9. DOXAZOSIN [Concomitant]
     Dosage: 4MG PER DAY
     Route: 048

REACTIONS (1)
  - Pancytopenia [Recovered/Resolved]
